FAERS Safety Report 11254744 (Version 1)
Quarter: 2015Q3

REPORT INFORMATION
  Report Type: Spontaneous
  Country: CN (occurrence: CN)
  Receive Date: 20150709
  Receipt Date: 20150709
  Transmission Date: 20151125
  Serious: Yes (Other)
  Sender: FDA-Public Use
  Company Number: CN-PFIZER INC-2015229334

PATIENT
  Age: 28 Year
  Sex: Female

DRUGS (1)
  1. METHYLPREDNISOLONE SODIUM SUCCINATE. [Suspect]
     Active Substance: METHYLPREDNISOLONE SODIUM SUCCINATE
     Indication: AUTOIMMUNE HAEMOLYTIC ANAEMIA
     Dosage: 0.5 G (SOLVENT: 0.9% NORMAL SALINE 100ML) ONCE DAILY
     Route: 041
     Dates: start: 20150122, end: 20150126

REACTIONS (1)
  - Epilepsy [Recovering/Resolving]

NARRATIVE: CASE EVENT DATE: 20150126
